FAERS Safety Report 15572372 (Version 1)
Quarter: 2018Q4

REPORT INFORMATION
  Report Type: Spontaneous
  Country: DE (occurrence: DE)
  Receive Date: 20181031
  Receipt Date: 20181031
  Transmission Date: 20190205
  Serious: Yes (Other)
  Sender: FDA-Public Use
  Company Number: DE-GLAXOSMITHKLINE-DE2018195529

PATIENT
  Age: 32 Year
  Sex: Male
  Weight: 86 kg

DRUGS (2)
  1. ELONTRIL [Suspect]
     Active Substance: BUPROPION HYDROCHLORIDE
     Indication: DRUG DEPENDENCE
     Dosage: 20 PCS. D. INHALES THE NOSE, TIME OF CAPTURE UNKNOWN
     Route: 045
  2. ELONTRIL [Suspect]
     Active Substance: BUPROPION HYDROCHLORIDE
     Indication: DEPRESSION
     Dosage: DAILY DOSE 150-300 MG
     Route: 048
     Dates: start: 201511, end: 201605

REACTIONS (4)
  - Product administration error [Unknown]
  - Mania [Unknown]
  - Drug dependence [Unknown]
  - Overdose [Unknown]
